FAERS Safety Report 22389406 (Version 1)
Quarter: 2023Q2

REPORT INFORMATION
  Report Type: Spontaneous
  Country: US (occurrence: None)
  Receive Date: 20230530
  Receipt Date: 20230530
  Transmission Date: 20230721
  Serious: Yes (Other)
  Sender: FDA-Public Use
  Company Number: None

PATIENT
  Age: 56 Year
  Sex: Male
  Weight: 101.7 kg

DRUGS (4)
  1. GAMMAGARD [Suspect]
     Active Substance: HUMAN IMMUNOGLOBULIN G
     Indication: Chronic inflammatory demyelinating polyradiculoneuropathy
     Dosage: OTHER FREQUENCY : EVERY 4 WEEKS;?
     Route: 041
     Dates: start: 20200915
  2. LISINOPRIL [Concomitant]
  3. METOPROLOL [Concomitant]
     Active Substance: METOPROLOL
  4. TORSEMIDE [Concomitant]
     Active Substance: TORSEMIDE

REACTIONS (8)
  - Abdominal pain upper [None]
  - Dizziness [None]
  - Headache [None]
  - Hypoaesthesia oral [None]
  - Paraesthesia oral [None]
  - Blood pressure increased [None]
  - Product use issue [None]
  - Infusion related reaction [None]

NARRATIVE: CASE EVENT DATE: 20230520
